FAERS Safety Report 5508721-4 (Version None)
Quarter: 2007Q4

REPORT INFORMATION
  Report Type: 
  Country: None (occurrence: None)
  Receive Date: 20071031
  Receipt Date: 20070605
  Transmission Date: 20080405
  Serious: No
  Sender: FDA-Public Use
  Company Number: 2007PV032994

PATIENT
  Age: 57 Year
  Sex: Female
  Weight: 88.905 kg

DRUGS (2)
  1. SYMLIN [Suspect]
     Indication: TYPE 2 DIABETES MELLITUS
     Dosage: 60 MCG;SC
     Route: 058
     Dates: start: 20070604
  2. HUMALOG [Concomitant]

REACTIONS (1)
  - NAUSEA [None]
